FAERS Safety Report 10358697 (Version 1)
Quarter: 2014Q3

REPORT INFORMATION
  Report Type: Spontaneous
  Country: CH (occurrence: CH)
  Receive Date: 20140804
  Receipt Date: 20140804
  Transmission Date: 20150326
  Serious: Yes (Hospitalization)
  Sender: FDA-Public Use
  Company Number: CH-ROCHE-1440255

PATIENT
  Age: 50 Year
  Sex: Male
  Weight: 63 kg

DRUGS (12)
  1. SPIRICORT [Interacting]
     Active Substance: PREDNISOLONE
     Indication: PROPHYLAXIS AGAINST TRANSPLANT REJECTION
     Route: 048
     Dates: start: 201401
  2. ASPIRIN CARDIO [Concomitant]
     Active Substance: ASPIRIN
  3. SANDIMMUN NEORAL [Interacting]
     Active Substance: CYCLOSPORINE
     Indication: PROPHYLAXIS AGAINST TRANSPLANT REJECTION
     Dosage: DOSE 125-0-125-0 MG
     Route: 048
     Dates: start: 201401
  4. LEVEMIR [Concomitant]
     Active Substance: INSULIN DETEMIR
  5. MADOPAR [Concomitant]
     Active Substance: BENSERAZIDE HYDROCHLORIDE\LEVODOPA
  6. CELLCEPT [Suspect]
     Active Substance: MYCOPHENOLATE MOFETIL\MYCOPHENOLATE MOFETIL HYDROCHLORIDE
     Indication: PROPHYLAXIS AGAINST TRANSPLANT REJECTION
     Route: 048
     Dates: start: 201401
  7. EFFEXOR [Interacting]
     Active Substance: VENLAFAXINE HYDROCHLORIDE
     Indication: PRODUCT USED FOR UNKNOWN INDICATION
     Route: 048
  8. BACTRIM [Concomitant]
     Active Substance: SULFAMETHOXAZOLE\TRIMETHOPRIM
     Route: 065
  9. CALCIMAGON [Concomitant]
  10. VI-DE 3 [Concomitant]
  11. NOVORAPID [Concomitant]
     Active Substance: INSULIN ASPART
  12. BELOC-ZOK [Concomitant]
     Active Substance: METOPROLOL SUCCINATE

REACTIONS (5)
  - Hypercholesterolaemia [Not Recovered/Not Resolved]
  - Type 2 diabetes mellitus [Not Recovered/Not Resolved]
  - Dyslipidaemia [Not Recovered/Not Resolved]
  - Hypertriglyceridaemia [Not Recovered/Not Resolved]
  - Drug interaction [Unknown]

NARRATIVE: CASE EVENT DATE: 201401
